FAERS Safety Report 7532263-8 (Version None)
Quarter: 2011Q2

REPORT INFORMATION
  Report Type: 
  Country: None (occurrence: None)
  Receive Date: 20110608
  Receipt Date: 20110603
  Transmission Date: 20111010
  Serious: Yes (Death, Other)
  Sender: FDA-Public Use
  Company Number: PHHY2011BE48692

PATIENT
  Age: 17 Year
  Sex: Male

DRUGS (2)
  1. TRAMADOL HCL [Suspect]
     Dosage: UNK UKN, UNK
  2. CETIRIZINE HCL [Suspect]
     Dosage: UNK UKN, UNK

REACTIONS (6)
  - FOAMING AT MOUTH [None]
  - INTENTIONAL OVERDOSE [None]
  - SUICIDAL IDEATION [None]
  - DRUG LEVEL INCREASED [None]
  - RESPIRATORY FAILURE [None]
  - ACUTE PULMONARY OEDEMA [None]
